FAERS Safety Report 16340109 (Version 1)
Quarter: 2019Q2

REPORT INFORMATION
  Report Type: Report from Study
  Country: None (occurrence: CA)
  Receive Date: 20190522
  Receipt Date: 20190522
  Transmission Date: 20190711
  Serious: Yes (Other)
  Sender: FDA-Public Use
  Company Number: CA-ABBVIE-19K-028-2788402-00

PATIENT
  Sex: Female

DRUGS (1)
  1. HUMIRA [Suspect]
     Active Substance: ADALIMUMAB
     Indication: COLITIS ULCERATIVE
     Route: 058
     Dates: start: 20170817

REACTIONS (5)
  - Arthropathy [Unknown]
  - Excessive granulation tissue [Unknown]
  - Anorectal discomfort [Unknown]
  - Perianal erythema [Unknown]
  - Proctitis [Unknown]
